FAERS Safety Report 9705614 (Version 1)
Quarter: 2013Q4

REPORT INFORMATION
  Report Type: Spontaneous
  Country: US (occurrence: US)
  Receive Date: 20131122
  Receipt Date: 20131122
  Transmission Date: 20140711
  Serious: No
  Sender: FDA-Public Use
  Company Number: US-GILEAD-2008-0017143

PATIENT
  Sex: Female
  Weight: 61.23 kg

DRUGS (10)
  1. LETAIRIS [Suspect]
     Indication: PULMONARY ARTERIAL HYPERTENSION
     Route: 048
     Dates: start: 20080612
  2. METOPROLOL [Concomitant]
     Route: 048
  3. LASIX [Concomitant]
     Route: 048
  4. COUMADIN [Concomitant]
     Route: 048
  5. DIAZEPAM [Concomitant]
     Route: 048
  6. TYLENOL #3 [Concomitant]
     Route: 048
  7. OCUVITE [Concomitant]
     Route: 048
  8. CENTRUM [Concomitant]
     Route: 048
  9. VITAMIN B-12 [Concomitant]
     Route: 048
  10. OMEGA 3 FISH OIL [Concomitant]
     Route: 048

REACTIONS (1)
  - Diarrhoea [None]
